FAERS Safety Report 13068930 (Version 2)
Quarter: 2016Q4

REPORT INFORMATION
  Report Type: Report from Study
  Country: NL (occurrence: NL)
  Receive Date: 20161228
  Receipt Date: 20161229
  Transmission Date: 20170207
  Serious: Yes (Death, Other)
  Sender: FDA-Public Use
  Company Number: NL-PFIZER INC-2016597509

PATIENT
  Sex: Female

DRUGS (10)
  1. CARBASALAATCALCIUM [Concomitant]
     Active Substance: CARBASPIRIN
     Route: 048
  2. DORZOLAMIDE [Concomitant]
     Active Substance: DORZOLAMIDE
     Dosage: DROP
  3. SIMVASTATINE [Concomitant]
     Active Substance: SIMVASTATIN
  4. HYDROCHLOORTHIAZIDE [Concomitant]
     Active Substance: HYDROCHLOROTHIAZIDE
     Route: 048
  5. BETAXOLOL. [Concomitant]
     Active Substance: BETAXOLOL
     Dosage: DROP
  6. LISINOPRIL. [Concomitant]
     Active Substance: LISINOPRIL
     Route: 048
  7. AMLODIPINE [Concomitant]
     Active Substance: AMLODIPINE BESYLATE
     Route: 048
  8. METFORMIN [Concomitant]
     Active Substance: METFORMIN HYDROCHLORIDE
     Route: 048
  9. BOSUTINIB [Suspect]
     Active Substance: BOSUTINIB
     Dosage: 500 MG, 1X/DAY
     Dates: start: 20140303, end: 20140330
  10. DIPYRIDAMOL [Concomitant]
     Route: 048

REACTIONS (2)
  - Venous stenosis [Unknown]
  - Death [Fatal]

NARRATIVE: CASE EVENT DATE: 20140327
